FAERS Safety Report 24594808 (Version 1)
Quarter: 2024Q4

REPORT INFORMATION
  Report Type: Spontaneous
  Country: FR (occurrence: FR)
  Receive Date: 20241108
  Receipt Date: 20241108
  Transmission Date: 20250115
  Serious: Yes (Other)
  Sender: PFIZER
  Company Number: FR-PFIZER INC-PV202400143740

PATIENT
  Age: 51 Year
  Sex: Female

DRUGS (5)
  1. BINIMETINIB [Suspect]
     Active Substance: BINIMETINIB
     Indication: Ductal adenocarcinoma of pancreas
     Dosage: 90 MG/DAY
     Dates: start: 202104, end: 2022
  2. BINIMETINIB [Suspect]
     Active Substance: BINIMETINIB
     Dosage: 90 MG, 1X/DAY
     Dates: start: 202207, end: 202209
  3. BINIMETINIB [Suspect]
     Active Substance: BINIMETINIB
     Dosage: 60 MG, 1X/DAY
     Dates: start: 202209, end: 202211
  4. ENCORAFENIB [Concomitant]
     Active Substance: ENCORAFENIB
     Indication: Pancreatic carcinoma metastatic
     Dosage: 300 MG, DAILY
  5. CETUXIMAB [Concomitant]
     Active Substance: CETUXIMAB
     Indication: Adenocarcinoma pancreas
     Dosage: 500 MG/M2 EVERY 2 WEEKS

REACTIONS (2)
  - Renal failure [Recovering/Resolving]
  - Skin toxicity [Unknown]

NARRATIVE: CASE EVENT DATE: 20220101
